FAERS Safety Report 6742828-9 (Version None)
Quarter: 2010Q2

REPORT INFORMATION
  Report Type: 
  Country: None (occurrence: None)
  Receive Date: 20100525
  Receipt Date: 20100514
  Transmission Date: 20101027
  Serious: Yes (Death, Hospitalization)
  Sender: FDA-Public Use
  Company Number: 231452J07USA

PATIENT
  Age: 68 Year
  Sex: Female
  Weight: 73 kg

DRUGS (5)
  1. REBIF [Suspect]
     Indication: MULTIPLE SCLEROSIS
     Dosage: 44 MCG, 3 IN 1 WK, SUBCUTANEOUS
     Route: 058
     Dates: start: 20070401, end: 20071201
  2. SYNTHROID [Concomitant]
  3. UNSPECIFIED HIGH BLOOD PRESSURE MEDICATION (ALL OTHER NON-THERAPEUTIC [Concomitant]
  4. DIOVAN [Concomitant]
  5. LASIX [Concomitant]

REACTIONS (8)
  - BACK PAIN [None]
  - BILE DUCT CANCER [None]
  - CERVIX CANCER METASTATIC [None]
  - GAIT DISTURBANCE [None]
  - METASTASES TO LIVER [None]
  - METASTASES TO LUNG [None]
  - METASTASES TO PANCREAS [None]
  - STAPHYLOCOCCAL INFECTION [None]
